FAERS Safety Report 25950217 (Version 3)
Quarter: 2025Q4

REPORT INFORMATION
  Report Type: Report from Study
  Country: EU (occurrence: EU)
  Receive Date: 20251022
  Receipt Date: 20251105
  Transmission Date: 20260118
  Serious: Yes (Other)
  Sender: ABBVIE
  Company Number: EU-ABBVIE-6510805

PATIENT
  Age: 67 Year
  Sex: Female

DRUGS (1)
  1. CARBIDOPA\LEVODOPA [Suspect]
     Active Substance: CARBIDOPA\LEVODOPA
     Indication: Parkinson^s disease
     Route: 058
     Dates: start: 20240222

REACTIONS (10)
  - Urinary incontinence [Not Recovered/Not Resolved]
  - Agitation [Not Recovered/Not Resolved]
  - Dehydration [Not Recovered/Not Resolved]
  - Aggression [Not Recovered/Not Resolved]
  - Nausea [Not Recovered/Not Resolved]
  - Fall [Not Recovered/Not Resolved]
  - Cognitive disorder [Not Recovered/Not Resolved]
  - Malnutrition [Not Recovered/Not Resolved]
  - Anal incontinence [Not Recovered/Not Resolved]
  - Gait inability [Not Recovered/Not Resolved]

NARRATIVE: CASE EVENT DATE: 20250901
